FAERS Safety Report 4399014-X (Version None)
Quarter: 2004Q3

REPORT INFORMATION
  Report Type: 
  Country: None (occurrence: None)
  Receive Date: 20040712
  Receipt Date: 20040617
  Transmission Date: 20050211
  Serious: Yes (Other)
  Sender: FDA-Public Use
  Company Number: A03200401971

PATIENT
  Age: 54 Year
  Sex: Male
  Weight: 106.3685 kg

DRUGS (8)
  1. ELOXATIN [Suspect]
     Indication: COLON CANCER
     Dosage: 203 MG Q2W - INTRAVENOUS NOS
     Route: 042
     Dates: start: 20040615, end: 20040615
  2. ELOXATIN [Suspect]
     Indication: METASTASES TO LIVER
     Dosage: 203 MG Q2W - INTRAVENOUS NOS
     Route: 042
     Dates: start: 20040615, end: 20040615
  3. FLUOROURACIL [Concomitant]
  4. LEUCOVORIN CALCIUM [Concomitant]
  5. DEXAMETHASONE [Concomitant]
  6. ONDANSETRON HCL [Concomitant]
  7. MAGNESIUM [Concomitant]
  8. CALCIUM [Concomitant]

REACTIONS (7)
  - BLOOD PRESSURE DECREASED [None]
  - CONVULSION [None]
  - DIZZINESS [None]
  - ERYTHEMA [None]
  - FLUSHING [None]
  - INFUSION RELATED REACTION [None]
  - NAUSEA [None]
